FAERS Safety Report 21614195 (Version 2)
Quarter: 2022Q4

REPORT INFORMATION
  Report Type: Report from Study
  Country: FR (occurrence: FR)
  Receive Date: 20221118
  Receipt Date: 20221214
  Transmission Date: 20230113
  Serious: Yes (Hospitalization)
  Sender: FDA-Public Use
  Company Number: FR-JNJFOC-20221119594

PATIENT
  Age: 74 Year
  Sex: Male
  Weight: 61 kg

DRUGS (5)
  1. TECLISTAMAB [Suspect]
     Active Substance: TECLISTAMAB
     Indication: Plasma cell myeloma refractory
     Route: 058
     Dates: start: 20220510, end: 20220512
  2. TECLISTAMAB [Suspect]
     Active Substance: TECLISTAMAB
     Route: 058
     Dates: start: 20220516, end: 20220830
  3. DARATUMUMAB [Suspect]
     Active Substance: DARATUMUMAB
     Indication: Plasma cell myeloma refractory
     Route: 058
     Dates: start: 20220509, end: 20220830
  4. ROSUVASTATIN CALCIUM [Concomitant]
     Active Substance: ROSUVASTATIN CALCIUM
     Indication: Dyslipidaemia
     Route: 048
     Dates: start: 20120101
  5. VALACYCLOVIR HYDROCHLORIDE [Concomitant]
     Active Substance: VALACYCLOVIR HYDROCHLORIDE
     Indication: Antiviral prophylaxis
     Route: 048
     Dates: start: 20190708

REACTIONS (1)
  - COVID-19 pneumonia [Recovered/Resolved]

NARRATIVE: CASE EVENT DATE: 20221031
